FAERS Safety Report 13940858 (Version 2)
Quarter: 2017Q4

REPORT INFORMATION
  Report Type: Report from Study
  Country: AU (occurrence: AU)
  Receive Date: 20170906
  Receipt Date: 20171207
  Transmission Date: 20180320
  Serious: Yes (Other)
  Sender: FDA-Public Use
  Company Number: AU-TOLMAR, INC.-2017AU011692

PATIENT
  Sex: Male

DRUGS (2)
  1. COSUDEX [Concomitant]
     Active Substance: BICALUTAMIDE
     Route: 065
  2. ELIGARD [Suspect]
     Active Substance: LEUPROLIDE ACETATE
     Indication: PROSTATE CANCER
     Dosage: 22.5 MG, Q3MONTHS
     Route: 065
     Dates: start: 20170526

REACTIONS (4)
  - Mobility decreased [Unknown]
  - Localised infection [Unknown]
  - Catheter placement [Unknown]
  - Adverse event [Unknown]
